FAERS Safety Report 5098920-0 (Version None)
Quarter: 2006Q3

REPORT INFORMATION
  Report Type: 
  Country: None (occurrence: None)
  Receive Date: 20060905
  Receipt Date: 20060823
  Transmission Date: 20061208
  Serious: Yes (Other)
  Sender: FDA-Public Use
  Company Number: 2006102821

PATIENT
  Sex: Female

DRUGS (1)
  1. SUDAFED 12 HOUR [Suspect]
     Indication: SINUS CONGESTION
     Dosage: ORAL
     Route: 048
     Dates: start: 20060401

REACTIONS (7)
  - ABNORMAL SENSATION IN EYE [None]
  - BLOOD PRESSURE INCREASED [None]
  - CHEST DISCOMFORT [None]
  - HEADACHE [None]
  - RESPIRATORY DISORDER [None]
  - STRESS [None]
  - VISION BLURRED [None]
